FAERS Safety Report 8132082-8 (Version None)
Quarter: 2012Q1

REPORT INFORMATION
  Report Type: 
  Country: None (occurrence: None)
  Receive Date: 20120213
  Receipt Date: 20120206
  Transmission Date: 20120608
  Serious: Yes (Other)
  Sender: FDA-Public Use
  Company Number: JP-PFIZER INC-2010083721

PATIENT
  Age: 67 Year
  Sex: Male

DRUGS (21)
  1. NYCLIN [Concomitant]
     Dosage: UNK
     Route: 048
     Dates: start: 20100625
  2. MUCODYNE [Concomitant]
     Dosage: UNK
     Route: 048
     Dates: start: 20100625
  3. MAGNESIUM OXIDE [Concomitant]
     Route: 048
  4. VALPROATE SODIUM [Concomitant]
     Route: 048
  5. CINAL [Concomitant]
     Dosage: UNK
     Route: 048
     Dates: start: 20100625
  6. JUVELA [Concomitant]
     Dosage: UNK
     Route: 048
     Dates: start: 20100625
  7. GLUCOBAY [Concomitant]
     Dosage: UNK
     Route: 048
     Dates: start: 20100625
  8. ASPARA K [Concomitant]
     Route: 048
  9. TAMSULOSIN HCL [Concomitant]
     Route: 048
  10. TARGOCID [Concomitant]
     Route: 041
  11. NITRAZEPAM [Concomitant]
     Route: 048
  12. UNASYN [Suspect]
     Dosage: UNK
     Route: 042
     Dates: start: 20100625
  13. MINOCYCLINE HCL [Suspect]
     Dosage: UNK
     Dates: start: 20100625
  14. AMBROXOL [Concomitant]
     Dosage: UNK
     Route: 048
     Dates: start: 20100625
  15. TERBINAFINE HYDROCHLORIDE [Concomitant]
     Dosage: UNK
     Route: 048
     Dates: start: 20100625
  16. FAMOTIDINE [Concomitant]
     Route: 048
  17. ENSURE [Concomitant]
     Route: 048
  18. CEFAZOLIN SODIUM [Concomitant]
     Route: 048
  19. RISPERDAL [Concomitant]
     Dosage: UNK
     Route: 048
     Dates: start: 20100625
  20. CLONAZEPAM [Concomitant]
     Dosage: UNK
     Route: 048
     Dates: start: 20100625
  21. VALTREX [Concomitant]
     Route: 048

REACTIONS (1)
  - TOXIC SKIN ERUPTION [None]
